FAERS Safety Report 9494437 (Version 1)
Quarter: 2013Q3

REPORT INFORMATION
  Report Type: Spontaneous
  Country: DE (occurrence: DE)
  Receive Date: 20130903
  Receipt Date: 20130903
  Transmission Date: 20140515
  Serious: Yes (Other)
  Sender: FDA-Public Use
  Company Number: PHHY2013DE093974

PATIENT
  Age: 48 Year
  Sex: Male

DRUGS (3)
  1. MITOMYCIN [Suspect]
     Indication: COLORECTAL CANCER
     Dosage: 10 MG/M2, ON DAYS 1 AND 22
     Route: 040
  2. 5-FLUOROURACIL [Suspect]
     Indication: COLORECTAL CANCER
     Dosage: 2600 MG/M2, UNK
  3. ONCOFOLIC [Suspect]
     Indication: COLORECTAL CANCER

REACTIONS (4)
  - Blood bilirubin increased [Unknown]
  - Haemoglobin decreased [Unknown]
  - Thrombocytopenia [Unknown]
  - Leukopenia [Unknown]
